FAERS Safety Report 22620298 (Version 1)
Quarter: 2023Q2

REPORT INFORMATION
  Report Type: Spontaneous
  Country: US (occurrence: None)
  Receive Date: 20230616
  Receipt Date: 20230616
  Transmission Date: 20230722
  Serious: Yes (Other)
  Sender: FDA-Public Use
  Company Number: None

PATIENT
  Age: 64 Year
  Sex: Female
  Weight: 79.4 kg

DRUGS (7)
  1. TREMFYA [Suspect]
     Active Substance: GUSELKUMAB
     Indication: Psoriasis
     Dosage: OTHER FREQUENCY : EVERY 8 WEEKS;?
     Route: 058
     Dates: start: 20211026, end: 20230214
  2. TREMFYA [Suspect]
     Active Substance: GUSELKUMAB
     Indication: Psoriasis
  3. losartan 50 mG once daily [Concomitant]
  4. betamethasone 0.05% ointment twice daily as needed [Concomitant]
  5. nystatin cream twice daily as needed [Concomitant]
  6. amlodipine 5 mG once daily [Concomitant]
  7. estrogen vaginal cream every 3-4 days [Concomitant]

REACTIONS (3)
  - Neutrophil count decreased [None]
  - White blood cell count decreased [None]
  - Urinary tract infection [None]

NARRATIVE: CASE EVENT DATE: 20230227
